FAERS Safety Report 25488456 (Version 1)
Quarter: 2025Q2

REPORT INFORMATION
  Report Type: Report from Study
  Country: CA (occurrence: CA)
  Receive Date: 20250627
  Receipt Date: 20250627
  Transmission Date: 20250717
  Serious: Yes (Other)
  Sender: ROCHE
  Company Number: CA-ROCHE-10000320338

PATIENT
  Sex: Male

DRUGS (16)
  1. ACTEMRA ACTPEN [Suspect]
     Active Substance: TOCILIZUMAB
     Indication: Giant cell arteritis
     Route: 058
     Dates: start: 20250228
  2. ASPIRIN [Concomitant]
     Active Substance: ASPIRIN
  3. CHOLECALCIFEROL [Concomitant]
     Active Substance: CHOLECALCIFEROL
  4. DILTIAZEM [Concomitant]
     Active Substance: DILTIAZEM
  5. FINASTERIDE [Concomitant]
     Active Substance: FINASTERIDE
  6. PANTOPRAZOLE [Concomitant]
     Active Substance: PANTOPRAZOLE
  7. PENTASA [Concomitant]
     Active Substance: MESALAMINE
  8. Perservision areds 2 [Concomitant]
  9. PREDNISONE [Concomitant]
     Active Substance: PREDNISONE
  10. Ratio topisone [Concomitant]
  11. RISEDRONATE SODIUM [Concomitant]
     Active Substance: RISEDRONATE SODIUM
  12. CELECOXIB [Concomitant]
     Active Substance: CELECOXIB
  13. SERTRALINE [Concomitant]
     Active Substance: SERTRALINE HYDROCHLORIDE
  14. SIMVASTATIN [Concomitant]
     Active Substance: SIMVASTATIN
  15. TELMISARTAN [Concomitant]
     Active Substance: TELMISARTAN
  16. PREDNISONE [Concomitant]
     Active Substance: PREDNISONE

REACTIONS (1)
  - Pancytopenia [Unknown]
